FAERS Safety Report 9440655 (Version 3)
Quarter: 2013Q4

REPORT INFORMATION
  Report Type: Report from Study
  Country: US (occurrence: US)
  Receive Date: 20130805
  Receipt Date: 20131216
  Transmission Date: 20140711
  Serious: Yes (Hospitalization)
  Sender: FDA-Public Use
  Company Number: US-ACTELION-A-US2013-86732

PATIENT
  Age: 75 Year
  Sex: Female

DRUGS (3)
  1. VENTAVIS [Suspect]
     Indication: PULMONARY ARTERIAL HYPERTENSION
     Dosage: UNK
     Route: 055
  2. LETAIRIS [Concomitant]
  3. COUMADIN [Concomitant]
     Dosage: UNK

REACTIONS (7)
  - Pulmonary oedema [Unknown]
  - Lung disorder [Unknown]
  - Gastric haemorrhage [Unknown]
  - Cardiac failure congestive [Unknown]
  - Asthenia [Unknown]
  - Epistaxis [Unknown]
  - Palpitations [Unknown]
